FAERS Safety Report 22645810 (Version 1)
Quarter: 2023Q2

REPORT INFORMATION
  Report Type: Spontaneous
  Country: CA (occurrence: CA)
  Receive Date: 20230627
  Receipt Date: 20230627
  Transmission Date: 20230721
  Serious: Yes (Death)
  Sender: FDA-Public Use
  Company Number: CA-PFIZER INC-2021607122

PATIENT
  Age: 62 Year
  Sex: Female

DRUGS (2)
  1. LORBRENA [Suspect]
     Active Substance: LORLATINIB
     Indication: Non-small cell lung cancer
     Dosage: 100 MG, DAILY
     Route: 048
     Dates: start: 20210605
  2. LORBRENA [Suspect]
     Active Substance: LORLATINIB
     Dosage: 100 MG, DAILY
     Route: 048
     Dates: start: 20211206, end: 202302

REACTIONS (9)
  - Death [Fatal]
  - Loss of personal independence in daily activities [Recovered/Resolved]
  - Anxiety [Not Recovered/Not Resolved]
  - Depression [Not Recovered/Not Resolved]
  - Pain [Recovered/Resolved]
  - Discomfort [Recovered/Resolved]
  - Dyspnoea [Unknown]
  - Gait disturbance [Unknown]
  - General physical health deterioration [Recovering/Resolving]

NARRATIVE: CASE EVENT DATE: 20230601
